FAERS Safety Report 6060730-5 (Version None)
Quarter: 2009Q1

REPORT INFORMATION
  Report Type: 
  Country: None (occurrence: None)
  Receive Date: 20090202
  Receipt Date: 20090119
  Transmission Date: 20090719
  Serious: Yes (Hospitalization, Other)
  Sender: FDA-Public Use
  Company Number: US-ELI_LILLY_AND_COMPANY-US200811003713

PATIENT
  Sex: Female
  Weight: 39.909 kg

DRUGS (12)
  1. FORTEO [Suspect]
     Indication: OSTEOPOROSIS
     Dosage: 20 U, DAILY (1/D)
  2. POTASSIUM CHLORIDE [Concomitant]
     Dosage: 20 MEQ, DAILY (1/D)
  3. HYOSCYAMINE [Concomitant]
     Dosage: 0.375 MG, DAILY (1/D)
  4. ALTACE [Concomitant]
     Dosage: 5 MG, DAILY (1/D)
  5. METOPROLOL [Concomitant]
     Dosage: 25 MG, DAILY (1/D)
  6. ENTOCORT EC [Concomitant]
     Dosage: 3 MG, DAILY (1/D)
  7. CALTRATE /00108001/ [Concomitant]
     Dosage: 600 D/F, DAILY (1/D)
  8. CITALOPRAM [Concomitant]
     Dosage: 10 MG, DAILY (1/D)
  9. ALLEGRA [Concomitant]
     Dosage: 180 D/F, DAILY (1/D)
  10. REMERON [Concomitant]
     Dosage: 3.75 MG, ALTERNATE WITH 1.88MG
  11. REMERON [Concomitant]
     Dosage: 1.88 MG, ALTERNATE WITH 3.75MG
  12. VERAPAMIL [Concomitant]
     Dosage: 180 D/F, DAILY (1/D)

REACTIONS (3)
  - BACK PAIN [None]
  - FALL [None]
  - HIP FRACTURE [None]
